FAERS Safety Report 6814951-1 (Version None)
Quarter: 2010Q3

REPORT INFORMATION
  Report Type: 
  Country: None (occurrence: None)
  Receive Date: 20100702
  Receipt Date: 20100623
  Transmission Date: 20110219
  Serious: Yes (Life-Threatening, Hospitalization)
  Sender: FDA-Public Use
  Company Number: DE-ROCHE-712300

PATIENT
  Sex: Male
  Weight: 71 kg

DRUGS (2)
  1. AVASTIN [Suspect]
     Dosage: LAST REPORTED APPLICATION WAS ON 2 JUN 2010
     Route: 042
     Dates: start: 20100421
  2. XELODA [Concomitant]
     Dosage: LAST REPORTED APPLICATION ON 13 JUN 2010
     Route: 048
     Dates: start: 20100421

REACTIONS (1)
  - AORTIC ANEURYSM RUPTURE [None]
